FAERS Safety Report 5767947-5 (Version None)
Quarter: 2008Q2

REPORT INFORMATION
  Report Type: 
  Country: None (occurrence: None)
  Receive Date: 20080612
  Receipt Date: 20080603
  Transmission Date: 20081010
  Serious: Yes (Hospitalization)
  Sender: FDA-Public Use
  Company Number: FR-PFIZER INC-2008047533

PATIENT
  Sex: Female

DRUGS (4)
  1. DALACINE IV [Suspect]
     Indication: ERYSIPELAS
     Route: 042
     Dates: start: 20071114, end: 20071121
  2. ENOXAPARIN SODIUM [Concomitant]
     Route: 058
     Dates: start: 20071114, end: 20071125
  3. PREDNISOLONE [Concomitant]
  4. FENOFIBRATE [Concomitant]

REACTIONS (5)
  - BLISTER [None]
  - ERYTHEMA [None]
  - PURPURA [None]
  - PYREXIA [None]
  - RASH MACULO-PAPULAR [None]
